FAERS Safety Report 9231861 (Version 1)
Quarter: 2013Q2

REPORT INFORMATION
  Report Type: Spontaneous
  Country: US (occurrence: US)
  Receive Date: 20130415
  Receipt Date: 20130415
  Transmission Date: 20140414
  Serious: No
  Sender: FDA-Public Use
  Company Number: US-PFIZER INC-2013117880

PATIENT
  Age: 71 Year
  Sex: Female

DRUGS (5)
  1. PRISTIQ [Suspect]
     Dosage: 50 MG, DAILY
     Dates: start: 20130410
  2. S-ADENOSYL-L-METHIONINE [Suspect]
     Indication: AFFECTIVE DISORDER
     Dosage: UNK
     Dates: start: 2012
  3. S-ADENOSYL-L-METHIONINE [Suspect]
     Indication: ARTHROPATHY
  4. ST. JOHN^S WORT [Suspect]
     Indication: AFFECTIVE DISORDER
     Dosage: UNK
     Dates: start: 2012
  5. ST. JOHN^S WORT [Suspect]
     Indication: ARTHROPATHY

REACTIONS (5)
  - Nausea [Unknown]
  - Agitation [Unknown]
  - Anxiety [Unknown]
  - Irritability [Unknown]
  - Decreased appetite [Unknown]
